FAERS Safety Report 19708121 (Version 1)
Quarter: 2021Q3

REPORT INFORMATION
  Report Type: Spontaneous
  Country: DE (occurrence: DE)
  Receive Date: 20210816
  Receipt Date: 20210816
  Transmission Date: 20211014
  Serious: Yes (Hospitalization, Other)
  Sender: FDA-Public Use
  Company Number: DE-ASTRAZENECA-2021A666097

PATIENT
  Sex: Male
  Weight: 146 kg

DRUGS (10)
  1. METAMIZOL [Concomitant]
     Active Substance: METAMIZOLE SODIUM
     Dosage: 500 MG, BEDARF
     Route: 065
  2. SITAGLIPTIN [Concomitant]
     Active Substance: SITAGLIPTIN
     Dosage: 100 MG, 1?0?0?0
     Route: 065
  3. BISOPROLOL [Concomitant]
     Active Substance: BISOPROLOL
     Dosage: 5 MG, 1?0?1?0
     Route: 065
  4. QUETIAPINE. [Suspect]
     Active Substance: QUETIAPINE
     Route: 065
  5. RAMIPRIL. [Concomitant]
     Active Substance: RAMIPRIL
     Dosage: 2.5 MG, 1?0?1?0
  6. PREGABALIN. [Concomitant]
     Active Substance: PREGABALIN
     Dosage: 150 MG, 1?0?0?0
     Route: 065
  7. BIPERIDEN [Concomitant]
     Active Substance: BIPERIDEN
     Dosage: 4 MG, 1?0?0?0
     Route: 065
  8. TORASEMID [Concomitant]
     Active Substance: TORSEMIDE
     Dosage: 10 MG, 1?0?0?0
     Route: 065
  9. ARIPIPRAZOL [Suspect]
     Active Substance: ARIPIPRAZOLE
     Route: 065
  10. METFORMIN [Concomitant]
     Active Substance: METFORMIN HYDROCHLORIDE
     Dosage: 500 MG, 2?0?1?0
     Route: 065

REACTIONS (9)
  - Dyspnoea [Unknown]
  - Diabetes mellitus [Unknown]
  - Schizophrenia [Unknown]
  - Oedema peripheral [Unknown]
  - Peripheral swelling [Unknown]
  - Erythema [Unknown]
  - Electrocardiogram abnormal [Unknown]
  - Weight increased [Unknown]
  - Hypertension [Unknown]
